FAERS Safety Report 12414515 (Version 1)
Quarter: 2016Q2

REPORT INFORMATION
  Report Type: Spontaneous
  Country: US (occurrence: US)
  Receive Date: 20160528
  Receipt Date: 20160528
  Transmission Date: 20160815
  Serious: No
  Sender: FDA-Public Use
  Company Number: PHHY2016US073183

PATIENT

DRUGS (2)
  1. LISTERINE ANTISEPTIC [Suspect]
     Active Substance: EUCALYPTOL\MENTHOL\METHYL SALICYLATE\THYMOL
     Indication: PRODUCT USED FOR UNKNOWN INDICATION
  2. VOLTAREN [Suspect]
     Active Substance: DICLOFENAC SODIUM
     Indication: MYALGIA
     Dosage: UNK
     Route: 065
     Dates: start: 201602, end: 201605

REACTIONS (8)
  - Drug administered at inappropriate site [Not Recovered/Not Resolved]
  - Nonspecific reaction [Not Recovered/Not Resolved]
  - Swelling face [Not Recovered/Not Resolved]
  - Lip swelling [Not Recovered/Not Resolved]
  - Pyrexia [Not Recovered/Not Resolved]
  - Hypersensitivity [Not Recovered/Not Resolved]
  - Swollen tongue [Not Recovered/Not Resolved]
  - Product use issue [Not Recovered/Not Resolved]
